FAERS Safety Report 9622677 (Version 1)
Quarter: 2013Q4

REPORT INFORMATION
  Report Type: Spontaneous
  Country: US (occurrence: US)
  Receive Date: 20131015
  Receipt Date: 20131015
  Transmission Date: 20140711
  Serious: No
  Sender: FDA-Public Use
  Company Number: US-PURDUE-USA-2012-0086417

PATIENT
  Sex: Female

DRUGS (2)
  1. BUTRANS [Suspect]
     Indication: PAIN
     Dosage: 5 MCG/HR, UNK
     Route: 062
     Dates: start: 20120426, end: 20120427
  2. SYNTHROID [Suspect]
     Indication: HYPOTHYROIDISM
     Dosage: 0.75 MCG, DAILY

REACTIONS (3)
  - Abdominal distension [Not Recovered/Not Resolved]
  - Dysuria [Unknown]
  - Abdominal pain lower [Not Recovered/Not Resolved]
